FAERS Safety Report 25675981 (Version 3)
Quarter: 2025Q4

REPORT INFORMATION
  Report Type: Spontaneous
  Country: US (occurrence: US)
  Receive Date: 20250813
  Receipt Date: 20251002
  Transmission Date: 20260118
  Serious: No
  Sender: PFIZER
  Company Number: US-PFIZER INC-202500156119

PATIENT
  Age: 14 Year
  Sex: Female
  Weight: 45.36 kg

DRUGS (7)
  1. GENOTROPIN [Suspect]
     Active Substance: SOMATROPIN
     Indication: Turner^s syndrome
     Dosage: 1.6 MILLIGRAMS A DAY
     Route: 058
  2. GENOTROPIN [Suspect]
     Active Substance: SOMATROPIN
     Indication: Short stature
  3. MAXALT [Concomitant]
     Active Substance: RIZATRIPTAN BENZOATE
     Indication: Headache
     Dosage: UNK
     Route: 048
  4. MOBIC [Concomitant]
     Active Substance: MELOXICAM
     Indication: Developmental hip dysplasia
     Dosage: 1 DF, DAILY (IN THE SUMMER)
  5. MOBIC [Concomitant]
     Active Substance: MELOXICAM
     Indication: Pain
     Dosage: 2 DF, DAILY (DURING SCHOOL DAYS)
  6. ZORYVE [Concomitant]
     Active Substance: ROFLUMILAST
     Indication: Psoriasis
     Dosage: EVERYDAY
     Route: 061
  7. AMITRIPTYLINE [Concomitant]
     Active Substance: AMITRIPTYLINE
     Indication: Migraine
     Dosage: 1 DF, 1X/DAY (TAKEN AT NIGHT)
     Route: 048

REACTIONS (4)
  - Device power source issue [Unknown]
  - Drug dose omission by device [Unknown]
  - Incorrect dose administered by device [Unknown]
  - Product administered at inappropriate site [Unknown]

NARRATIVE: CASE EVENT DATE: 20250701
